FAERS Safety Report 15942531 (Version 2)
Quarter: 2019Q1

REPORT INFORMATION
  Report Type: Spontaneous
  Country: DK (occurrence: DK)
  Receive Date: 20190210
  Receipt Date: 20190226
  Transmission Date: 20190417
  Serious: Yes (Other)
  Sender: FDA-Public Use
  Company Number: PHHY2019DK019049

PATIENT
  Age: 64 Year
  Sex: Female

DRUGS (6)
  1. METHOTREXATE. [Suspect]
     Active Substance: METHOTREXATE
     Indication: BLASTIC PLASMACYTOID DENDRITIC CELL NEOPLASIA
     Route: 065
  2. DAUNORUBICIN [Suspect]
     Active Substance: DAUNORUBICIN
     Indication: BLASTIC PLASMACYTOID DENDRITIC CELL NEOPLASIA
     Dosage: UNK
     Route: 065
  3. DEXAMETHASONE. [Suspect]
     Active Substance: DEXAMETHASONE
     Indication: BLASTIC PLASMACYTOID DENDRITIC CELL NEOPLASIA
     Route: 065
  4. CYTOSTAR [Suspect]
     Active Substance: CYTARABINE
     Indication: BLASTIC PLASMACYTOID DENDRITIC CELL NEOPLASIA
     Dosage: UNK
     Route: 065
  5. BORTEZOMIB. [Suspect]
     Active Substance: BORTEZOMIB
     Indication: BLASTIC PLASMACYTOID DENDRITIC CELL NEOPLASIA
     Route: 065
  6. HYDROCORTISONE. [Suspect]
     Active Substance: HYDROCORTISONE
     Indication: BLASTIC PLASMACYTOID DENDRITIC CELL NEOPLASIA
     Route: 065

REACTIONS (5)
  - Paraesthesia [Unknown]
  - Chronic graft versus host disease in skin [Unknown]
  - Neuropathy peripheral [Unknown]
  - Scleroderma [Unknown]
  - Off label use [Unknown]
